FAERS Safety Report 14806019 (Version 2)
Quarter: 2018Q3

REPORT INFORMATION
  Report Type: Spontaneous
  Country: DE (occurrence: DE)
  Receive Date: 20180425
  Receipt Date: 20180702
  Transmission Date: 20181010
  Serious: Yes (Life-Threatening, Hospitalization, Other)
  Sender: FDA-Public Use
  Company Number: DE-SA-199710096HPD

PATIENT
  Age: 81 Year
  Sex: Female

DRUGS (11)
  1. DIGIMERCK [Suspect]
     Active Substance: DIGITOXIN
     Indication: CARDIAC FAILURE
  2. SPASMO?URGENIN [Suspect]
     Active Substance: HERBALS\TROSPIUM
     Indication: NOCTURIA
     Dosage: UNK UNK,UNK
     Route: 048
     Dates: start: 19960509
  3. COTRIMOXAZOLE [Suspect]
     Active Substance: SULFAMETHOXAZOLE\TRIMETHOPRIM
     Indication: URINARY TRACT INFECTION
     Dosage: UNK UNK,UNK
     Route: 048
     Dates: start: 19960309
  4. GLIBENCLAMIDE [Suspect]
     Active Substance: GLYBURIDE
     Indication: DIABETES MELLITUS
     Dosage: 1 DF,QD
     Route: 048
  5. ISOKET [Suspect]
     Active Substance: ISOSORBIDE DINITRATE
     Indication: CARDIAC FAILURE
     Dosage: 1 DF,QD
     Route: 048
  6. ASPIRIN. [Suspect]
     Active Substance: ASPIRIN
     Indication: THROMBOSIS PROPHYLAXIS
     Dosage: 1 DF, QD
     Route: 048
  7. BACTRIM [Suspect]
     Active Substance: SULFAMETHOXAZOLE\TRIMETHOPRIM
     Indication: URINARY TRACT INFECTION
     Dosage: 1DF,QD
     Route: 048
     Dates: start: 19960506, end: 19960508
  8. DIGIMERCK [Suspect]
     Active Substance: DIGITOXIN
     Indication: CARDIAC FAILURE
  9. DIGIMERCK [Suspect]
     Active Substance: DIGITOXIN
     Indication: CARDIAC FAILURE
     Dosage: 1 DF,QD
     Route: 048
  10. ISOKET [Suspect]
     Active Substance: ISOSORBIDE DINITRATE
     Indication: CARDIAC FAILURE
  11. ISOKET [Suspect]
     Active Substance: ISOSORBIDE DINITRATE
     Indication: CARDIAC FAILURE

REACTIONS (1)
  - Stevens-Johnson syndrome [Recovered/Resolved with Sequelae]

NARRATIVE: CASE EVENT DATE: 19960518
